FAERS Safety Report 13124348 (Version 1)
Quarter: 2017Q1

REPORT INFORMATION
  Report Type: Spontaneous
  Country: FR (occurrence: FR)
  Receive Date: 20170118
  Receipt Date: 20170118
  Transmission Date: 20170428
  Serious: Yes (Other)
  Sender: FDA-Public Use
  Company Number: FR-ACCORD-047442

PATIENT
  Age: 50 Year
  Sex: Male

DRUGS (3)
  1. BRINCIDOFOVIR [Concomitant]
     Active Substance: BRINCIDOFOVIR
     Indication: CYTOMEGALOVIRUS INFECTION
     Route: 042
     Dates: start: 201509
  2. TACROLIMUS. [Suspect]
     Active Substance: TACROLIMUS
     Indication: IMMUNOSUPPRESSION
  3. EVEROLIMUS [Suspect]
     Active Substance: EVEROLIMUS
     Indication: CYTOMEGALOVIRUS INFECTION

REACTIONS (2)
  - Thrombotic microangiopathy [Unknown]
  - Overdose [Unknown]
